FAERS Safety Report 9511039 (Version 1)
Quarter: 2013Q1

REPORT INFORMATION
  Report Type: Spontaneous
  Country: US (occurrence: None)
  Receive Date: 20130305
  Receipt Date: 20130305
  Transmission Date: 20140127
  Serious: Yes (Hospitalization)
  Sender: FDA-Public Use
  Company Number: 163-21880-12021220

PATIENT
  Age: 62 Year
  Sex: Male
  Weight: 62.14 kg

DRUGS (13)
  1. REVLIMID (LENALIDOMIDE) (25 MILLIGRAM, CAPSULES) [Suspect]
     Indication: PLASMA CELL MYELOMA
     Dosage: 1 IN 1 D
     Route: 048
     Dates: start: 200811, end: 2009
  2. VELCADE [Suspect]
     Indication: PRODUCT USED FOR UNKNOWN INDICATION
     Dosage: 1.8 MG-2.3 MG, UNK
     Dates: start: 20111128, end: 20120130
  3. CYTOXAN (CYCLOPHOSPHAMIDE) (UNKNOWN) [Concomitant]
  4. DECADRON [Concomitant]
  5. OXYCONTIN (OXYCODONE HYDROCHLORIDE) (UNKNOWN) [Concomitant]
  6. DEXAMETHASONE (DEXAMETHASONE) (UNKNOWN) [Concomitant]
  7. GABAPENTIN (GABAPENTIN) (UNKNOWN) (GABAPENTIN) [Concomitant]
  8. VIAGRA (SILDENAFIL CITRATE) (UNKNOWN) [Concomitant]
  9. NORVASC (AMLODIPINE BESILATE) (UNKNOWN) [Concomitant]
  10. LISINOPRIL (LISINOPRIL) (UNKNOWN) [Concomitant]
  11. ASPIRIN (ACETYLSALICYLIC ACID) (UNKNOWN) (ACETYLSALICYLIC ACID) [Concomitant]
  12. CALTRATE (CALCIUM CARBONATE) (UNKNOWN) [Concomitant]
  13. NEURONTIN (GABAPENTIN) (UNKNOWN) [Concomitant]

REACTIONS (4)
  - Back pain [None]
  - Nausea [None]
  - Vomiting [None]
  - Plasma cell myeloma [None]
